FAERS Safety Report 6130553-7 (Version None)
Quarter: 2009Q1

REPORT INFORMATION
  Report Type: 
  Country: None (occurrence: None)
  Receive Date: 20090323
  Receipt Date: 20090311
  Transmission Date: 20090719
  Serious: Yes (Death)
  Sender: FDA-Public Use
  Company Number: 2009US000739

PATIENT
  Age: 51 Year
  Sex: Female

DRUGS (2)
  1. AMBISOME [Suspect]
     Indication: FUNGAL INFECTION
  2. MYCAMINE [Suspect]
     Indication: FUNGAL INFECTION

REACTIONS (1)
  - ORGAN FAILURE [None]
